FAERS Safety Report 18308592 (Version 1)
Quarter: 2020Q3

REPORT INFORMATION
  Report Type: Spontaneous
  Country: RU (occurrence: RU)
  Receive Date: 20200924
  Receipt Date: 20200924
  Transmission Date: 20201103
  Serious: Yes (Death)
  Sender: FDA-Public Use
  Company Number: RU-ABBVIE-20K-251-3580138-00

PATIENT
  Sex: Male
  Weight: .9 kg

DRUGS (1)
  1. SURVANTA [Suspect]
     Active Substance: BERACTANT
     Indication: RESPIRATORY DISTRESS
     Route: 007
     Dates: start: 201906, end: 201906

REACTIONS (2)
  - Heart disease congenital [Fatal]
  - Brain malformation [Fatal]
